FAERS Safety Report 18212208 (Version 1)
Quarter: 2020Q3

REPORT INFORMATION
  Report Type: Spontaneous
  Country: AU (occurrence: AU)
  Receive Date: 20200831
  Receipt Date: 20200831
  Transmission Date: 20201103
  Serious: Yes (Other)
  Sender: FDA-Public Use
  Company Number: AU-PFIZER INC-2020331152

PATIENT
  Sex: Female
  Weight: 1.5 kg

DRUGS (14)
  1. METOCLOPRAMIDE HCL [Suspect]
     Active Substance: METOCLOPRAMIDE HYDROCHLORIDE
     Indication: HYPEREMESIS GRAVIDARUM
     Dosage: UNK
     Route: 064
  2. MIDAZOLAM HCL [Suspect]
     Active Substance: MIDAZOLAM HYDROCHLORIDE
     Dosage: 1.5 MG/HR (INCREASED/INFUSION)
     Route: 064
  3. RANITIDINE. [Suspect]
     Active Substance: RANITIDINE
     Indication: IMPAIRED GASTRIC EMPTYING
     Dosage: UNK
     Route: 064
  4. BACTERIOSTATIC SODIUM CHLORIDE [Suspect]
     Active Substance: SODIUM CHLORIDE
     Dosage: 6 L, (6 LITRES OVER 24 HOURS)
     Route: 064
  5. RANITIDINE. [Suspect]
     Active Substance: RANITIDINE
     Indication: OESOPHAGITIS
  6. MIDAZOLAM HCL [Suspect]
     Active Substance: MIDAZOLAM HYDROCHLORIDE
     Dosage: 1 MG/HR (INFUSION)
     Route: 064
  7. MIDAZOLAM HCL [Suspect]
     Active Substance: MIDAZOLAM HYDROCHLORIDE
     Indication: HYPEREMESIS GRAVIDARUM
     Dosage: 2 MG
     Route: 064
  8. PROCHLORPERAZINE. [Suspect]
     Active Substance: PROCHLORPERAZINE
     Indication: HYPEREMESIS GRAVIDARUM
     Dosage: 12.5 MG (6?8 HOUR)
     Route: 064
  9. DEXAMETHASONE SODIUM PHOSPHATE. [Suspect]
     Active Substance: DEXAMETHASONE SODIUM PHOSPHATE
     Dosage: UNK
     Route: 064
  10. MECLIZINE HCL [Suspect]
     Active Substance: MECLIZINE HYDROCHLORIDE
     Indication: HYPEREMESIS GRAVIDARUM
     Dosage: UNK
     Route: 064
  11. PYRIDOXINE [Suspect]
     Active Substance: PYRIDOXINE
     Indication: HYPEREMESIS GRAVIDARUM
     Dosage: UNK
     Route: 064
  12. DROPERIDOL. [Suspect]
     Active Substance: DROPERIDOL
     Indication: HYPEREMESIS GRAVIDARUM
     Dosage: UNK
     Route: 064
  13. INSULIN [Suspect]
     Active Substance: INSULIN NOS
     Indication: DIABETIC KETOACIDOSIS
     Dosage: UNK
     Route: 064
  14. ONDANSETRON HCL [Suspect]
     Active Substance: ONDANSETRON HYDROCHLORIDE
     Indication: HYPEREMESIS GRAVIDARUM
     Dosage: UNK
     Route: 064

REACTIONS (2)
  - Premature baby [Unknown]
  - Maternal exposure during pregnancy [Unknown]
